FAERS Safety Report 5653441-9 (Version None)
Quarter: 2008Q1

REPORT INFORMATION
  Report Type: 
  Country: None (occurrence: None)
  Receive Date: 20080306
  Receipt Date: 20080227
  Transmission Date: 20080703
  Serious: Yes (Hospitalization)
  Sender: FDA-Public Use
  Company Number: B0510169A

PATIENT
  Age: 85 Year
  Sex: Female

DRUGS (5)
  1. LAMICTAL [Suspect]
     Indication: DRUG USE FOR UNKNOWN INDICATION
     Route: 048
     Dates: start: 20070227, end: 20070628
  2. URBANYL [Concomitant]
     Dosage: 10MG PER DAY
     Route: 048
     Dates: start: 20070531, end: 20070610
  3. SOPROL [Concomitant]
     Dosage: 10MG PER DAY
     Route: 048
     Dates: end: 20070612
  4. IKOREL [Concomitant]
     Dosage: 40MG PER DAY
     Route: 048
     Dates: end: 20070612
  5. FRACTAL [Concomitant]
     Dosage: 80MG PER DAY
     Route: 048
     Dates: end: 20070612

REACTIONS (6)
  - ANTEROGRADE AMNESIA [None]
  - CONFUSIONAL STATE [None]
  - DISORIENTATION [None]
  - ENCEPHALOPATHY [None]
  - FALL [None]
  - SOMNOLENCE [None]
